FAERS Safety Report 9423052 (Version 1)
Quarter: 2013Q3

REPORT INFORMATION
  Report Type: Spontaneous
  Country: CA (occurrence: None)
  Receive Date: 20130725
  Receipt Date: 20130725
  Transmission Date: 20140515
  Serious: Yes (Other)
  Sender: FDA-Public Use
  Company Number: 2013036970

PATIENT
  Age: 82 Year
  Sex: Male

DRUGS (3)
  1. PRIVIGEN [Suspect]
     Indication: HERPES ZOSTER
     Dosage: INTRAVENOUS (NOT OTHERWISE SPECIFIED)
     Route: 042
     Dates: start: 20130505, end: 20130527
  2. ANITIBIOTICS (ANTIBIOTICS) [Concomitant]
  3. TYLENOL /00020001/ (PARATACETAMOL) [Concomitant]

REACTIONS (16)
  - Febrile nonhaemolytic transfusion reaction [None]
  - Pyrexia [None]
  - Hypotension [None]
  - Chills [None]
  - Vomiting [None]
  - Erythema [None]
  - Hypoxia [None]
  - Somnolence [None]
  - Tachypnoea [None]
  - Drug administration error [None]
  - Incorrect drug administration rate [None]
  - Wrong technique in drug usage process [None]
  - Oral bacterial infection [None]
  - Beta haemolytic streptococcal infection [None]
  - Haemoglobin decreased [None]
  - Sepsis [None]
